FAERS Safety Report 7331551-8 (Version None)
Quarter: 2011Q1

REPORT INFORMATION
  Report Type: 
  Country: None (occurrence: None)
  Receive Date: 20110228
  Receipt Date: 20110228
  Transmission Date: 20110831
  Serious: Yes (Other)
  Sender: FDA-Public Use
  Company Number: None

PATIENT
  Age: 23 Year
  Sex: Female
  Weight: 58.9676 kg

DRUGS (2)
  1. PAXIL [Suspect]
     Indication: DEPRESSION
     Dosage: 40MG 1X/DAILY PO
     Route: 048
     Dates: start: 20100101, end: 20101225
  2. PAXIL [Suspect]
     Indication: ANXIETY
     Dosage: 40MG 1X/DAILY PO
     Route: 048
     Dates: start: 20100101, end: 20101225

REACTIONS (17)
  - MYALGIA [None]
  - NAUSEA [None]
  - THROAT TIGHTNESS [None]
  - TOOTHACHE [None]
  - PALPITATIONS [None]
  - HEADACHE [None]
  - PAIN IN JAW [None]
  - FORMICATION [None]
  - PREGNANCY [None]
  - DRUG EXPOSURE DURING PREGNANCY [None]
  - VISION BLURRED [None]
  - PYREXIA [None]
  - CRYING [None]
  - DIARRHOEA [None]
  - MUSCLE SPASMS [None]
  - WITHDRAWAL SYNDROME [None]
  - CHEST DISCOMFORT [None]
